FAERS Safety Report 13418566 (Version 2)
Quarter: 2017Q2

REPORT INFORMATION
  Report Type: Report from Study
  Country: US (occurrence: US)
  Receive Date: 20170406
  Receipt Date: 20170526
  Transmission Date: 20170830
  Serious: Yes (Hospitalization, Other)
  Sender: FDA-Public Use
  Company Number: PHEH2017US009811

PATIENT
  Age: 66 Year
  Sex: Female
  Weight: 57.82 kg

DRUGS (1)
  1. GILENYA [Suspect]
     Active Substance: FINGOLIMOD HYDROCHLORIDE
     Indication: MULTIPLE SCLEROSIS
     Dosage: 0.5 MG, QD
     Route: 048
     Dates: start: 20170307

REACTIONS (13)
  - Hypersensitivity [Unknown]
  - Pain in extremity [Unknown]
  - Feeling abnormal [Unknown]
  - Fatigue [Unknown]
  - Stress [Unknown]
  - Depression [Unknown]
  - Oral mucosal blistering [Unknown]
  - Hypoaesthesia [Unknown]
  - Abasia [Unknown]
  - Depressed mood [Unknown]
  - Abdominal pain [Unknown]
  - Rash [Unknown]
  - Arthralgia [Unknown]

NARRATIVE: CASE EVENT DATE: 20170309
